FAERS Safety Report 18649426 (Version 4)
Quarter: 2021Q1

REPORT INFORMATION
  Report Type: Spontaneous
  Country: NL (occurrence: NL)
  Receive Date: 20201222
  Receipt Date: 20210106
  Transmission Date: 20210419
  Serious: Yes (Death)
  Sender: FDA-Public Use
  Company Number: NL-TEVA-2020-NL-1859825

PATIENT
  Age: 53 Year
  Sex: Female
  Weight: 66 kg

DRUGS (4)
  1. MOMETASON NEUSSPRAY 50UG/DO / NASONEX NEUSSPRAY 50MCG/DO 140DO [Concomitant]
     Dosage: 50 UG / DOSE (MICROGRAMS PER DOSE), THERAPY START DATE; THERAPY END DATE : ASKED BUT UNKNOWN
  2. COTRIMOXAZOL 960 TABLET 160/800MG / BRAND NAME NOT SPECIFIED [Suspect]
     Active Substance: SULFAMETHOXAZOLE\TRIMETHOPRIM
     Indication: CHRONIC SINUSITIS
     Dosage: 2 DOSAGE FORMS DAILY; THERAPY END DATE : ASKED BUT UNKNOWN
     Dates: start: 20201105
  3. FLUOXETINE DISPERTABLET 20MG / BRAND NAME NOT SPECIFIED [Concomitant]
     Dosage: 20 MG (MILLIGRAM), THERAPY START DATE; THERAPY END DATE : ASKED BUT UNKNOWN
  4. METOCLOPRAMIDE TABLET 10MG / BRAND NAME NOT SPECIFIED [Concomitant]
     Active Substance: METOCLOPRAMIDE
     Dosage: 10 MG (MILLIGRAM), THERAPY START DATE; THERAPY END DATE : ASKED BUT UNKNOWN

REACTIONS (3)
  - Immune thrombocytopenia [Fatal]
  - Cerebellar haemorrhage [Fatal]
  - Cardiac arrest [Fatal]

NARRATIVE: CASE EVENT DATE: 20201123
